FAERS Safety Report 15384275 (Version 1)
Quarter: 2018Q3

REPORT INFORMATION
  Report Type: Spontaneous
  Country: CZ (occurrence: CZ)
  Receive Date: 20180914
  Receipt Date: 20180914
  Transmission Date: 20181010
  Serious: Yes (Life-Threatening)
  Sender: FDA-Public Use
  Company Number: CZ-EDENBRIDGE PHARMACEUTICALS, LLC-CZ-2018EDE000266

PATIENT

DRUGS (3)
  1. PREDNISOLONE SODIUM PHOSPHATE. [Suspect]
     Active Substance: PREDNISOLONE SODIUM PHOSPHATE
     Dosage: 10 MG, (BETWEEN SECOND AND THIRD SESSION)
     Route: 048
  2. METHYLPREDNISOLONE. [Suspect]
     Active Substance: METHYLPREDNISOLONE
     Indication: BASEDOW^S DISEASE
     Dosage: 1 G, EVERY MONTH FOR 2 MONTHS
     Route: 042
  3. PREDNISOLONE SODIUM PHOSPHATE. [Suspect]
     Active Substance: PREDNISOLONE SODIUM PHOSPHATE
     Indication: BASEDOW^S DISEASE
     Dosage: 20 MG, (BETWEEN FIRST AND SECOND SESSION)
     Route: 048

REACTIONS (1)
  - Splenic abscess [Recovered/Resolved]
